FAERS Safety Report 10362435 (Version 1)
Quarter: 2014Q1

REPORT INFORMATION
  Report Type: Spontaneous
  Country: US (occurrence: None)
  Receive Date: 20140306
  Receipt Date: 20140306
  Transmission Date: 20141002
  Serious: Yes (Other)
  Sender: FDA-Public Use
  Company Number: 163-21880-13061215

PATIENT
  Age: 61 Year
  Sex: Female

DRUGS (8)
  1. REVLIMID (LENALIDOMIDE) (25 MILLIGRAM, CAPSULES) [Suspect]
     Indication: PLASMA CELL MYELOMA
     Route: 048
     Dates: start: 201002
  2. MORPHINE SULFATE (MORPHINE SULFATE) (INJECTION) [Concomitant]
  3. CODEINE PHOSPHATE (CODEINE PHOSPHATE) (INJECTION) [Concomitant]
  4. XANAX (ALPRAZOLAM) (TABLETS) [Concomitant]
  5. AMBIEN (ZOLPIDEM TARTRATE) (TABLETS) [Concomitant]
  6. ZOFRAN (ONDANSETRON HYDROCHLORIDE) (TABLETS) [Concomitant]
  7. LEVOTHROID (LEVOTHYROXINE SODIUM) (TABLETS) [Concomitant]
  8. AMPHETAMINE (AMFETAMINE) (CAPSULES) [Concomitant]

REACTIONS (9)
  - Dehydration [None]
  - Memory impairment [None]
  - Flatulence [None]
  - Incontinence [None]
  - Confusional state [None]
  - Diarrhoea [None]
  - Rash macular [None]
  - Hyperhidrosis [None]
  - Exfoliative rash [None]
